FAERS Safety Report 10109801 (Version 2)
Quarter: 2014Q3

REPORT INFORMATION
  Report Type: Spontaneous
  Country: US (occurrence: None)
  Receive Date: 20140421
  Receipt Date: 20140722
  Transmission Date: 20150326
  Serious: No
  Sender: FDA-Public Use
  Company Number: AEGR000312

PATIENT
  Age: 59 Year
  Sex: Female
  Weight: 92.5 kg

DRUGS (10)
  1. PREVACID [Concomitant]
     Active Substance: LANSOPRAZOLE
  2. ATENOLOL (ATENOLOL) [Concomitant]
     Active Substance: ATENOLOL
  3. EFFIENT (PRASUGREL HYDROCHLORIDE) [Concomitant]
  4. RANITIDINE [Suspect]
     Active Substance: RANITIDINE\RANITIDINE HYDROCHLORIDE
  5. GLUCOSAMINE AND CHONDROITIN (CHONDROITIN SULFATE SODIUM, GLUCASAMINE) [Concomitant]
  6. JUXTAPID [Suspect]
     Active Substance: LOMITAPIDE MESYLATE
     Indication: TYPE IIA HYPERLIPIDAEMIA
     Route: 048
     Dates: start: 201312, end: 20140210
  7. LOSARTAN (LOSARTAN POTASSIUM) [Concomitant]
  8. COLLAGEN (COLLAGEN) [Concomitant]
  9. CLARITIN [Concomitant]
     Active Substance: LORATADINE
  10. GINKOBA (GINKGO BILOBA) [Concomitant]

REACTIONS (9)
  - Somnolence [None]
  - Abdominal pain upper [None]
  - Diarrhoea [None]
  - Gastrointestinal disorder [None]
  - Flatulence [None]
  - Feeling abnormal [None]
  - Abdominal discomfort [None]
  - Headache [None]
  - Weight decreased [None]

NARRATIVE: CASE EVENT DATE: 20140202
